FAERS Safety Report 9704771 (Version 3)
Quarter: 2015Q3

REPORT INFORMATION
  Report Type: Report from Study
  Country: US (occurrence: US)
  Receive Date: 20131122
  Receipt Date: 20150820
  Transmission Date: 20151125
  Serious: Yes (Death, Other)
  Sender: FDA-Public Use
  Company Number: US-ROCHE-795786

PATIENT

DRUGS (12)
  1. IFOSFAMIDE. [Suspect]
     Active Substance: IFOSFAMIDE
     Indication: BURKITT^S LYMPHOMA
     Route: 042
  2. FILGRASTIM [Suspect]
     Active Substance: FILGRASTIM
     Indication: BURKITT^S LYMPHOMA
     Route: 065
  3. PEGFILGRASTIM [Suspect]
     Active Substance: PEGFILGRASTIM
     Indication: BURKITT^S LYMPHOMA
     Route: 065
  4. DOXORUBICIN [Suspect]
     Active Substance: DOXORUBICIN
     Indication: BURKITT^S LYMPHOMA
     Route: 042
  5. LEUCOVORIN. [Suspect]
     Active Substance: LEUCOVORIN
     Indication: BURKITT^S LYMPHOMA
     Route: 042
  6. ETOPOSIDE. [Suspect]
     Active Substance: ETOPOSIDE
     Indication: BURKITT^S LYMPHOMA
     Route: 042
  7. CYTARABINE. [Suspect]
     Active Substance: CYTARABINE
     Indication: BURKITT^S LYMPHOMA
     Route: 065
  8. RITUXIMAB [Suspect]
     Active Substance: RITUXIMAB
     Indication: BURKITT^S LYMPHOMA
     Route: 042
  9. CYCLOPHOSPHAMIDE. [Suspect]
     Active Substance: CYCLOPHOSPHAMIDE
     Indication: BURKITT^S LYMPHOMA
     Dosage: ON DAY 15
     Route: 042
  10. VINCRISTINE [Suspect]
     Active Substance: VINCRISTINE
     Indication: BURKITT^S LYMPHOMA
     Route: 065
  11. METHOTREXATE [Suspect]
     Active Substance: METHOTREXATE
     Indication: BURKITT^S LYMPHOMA
     Route: 065
  12. MESNA. [Suspect]
     Active Substance: MESNA
     Indication: BURKITT^S LYMPHOMA
     Route: 042

REACTIONS (28)
  - Thrombocytopenia [Unknown]
  - Hemiparesis [Unknown]
  - Coagulopathy [Unknown]
  - Eye disorder [Unknown]
  - Renal disorder [Unknown]
  - Pneumonia [Fatal]
  - Neutropenia [Unknown]
  - Musculoskeletal disorder [Unknown]
  - Mental disorder [Unknown]
  - Hepatic failure [Fatal]
  - Gastrointestinal toxicity [Fatal]
  - Pneumonitis [Unknown]
  - Myelodysplastic syndrome [Unknown]
  - Encephalopathy [Fatal]
  - Lung infiltration [Unknown]
  - Anaemia [Unknown]
  - Febrile neutropenia [Unknown]
  - Nervous system disorder [Unknown]
  - Thrombosis [Unknown]
  - Angiopathy [Unknown]
  - Pain [Unknown]
  - Fungal infection [Fatal]
  - Hepatitis B [Fatal]
  - HIV infection [Fatal]
  - Infection [Fatal]
  - Leukopenia [Unknown]
  - Tumour lysis syndrome [Unknown]
  - Metabolic disorder [Unknown]
